FAERS Safety Report 8599722-0 (Version None)
Quarter: 2012Q3

REPORT INFORMATION
  Report Type: 
  Country: None (occurrence: None)
  Receive Date: 20120816
  Receipt Date: 20120813
  Transmission Date: 20120928
  Serious: No
  Sender: FDA-Public Use
  Company Number: US-ASTRAZENECA-2012SE56720

PATIENT
  Age: 49 Year
  Sex: Male
  Weight: 104.3 kg

DRUGS (2)
  1. NEXIUM [Suspect]
     Route: 048
     Dates: start: 20080101
  2. NEXIUM [Suspect]
     Indication: GASTROOESOPHAGEAL REFLUX DISEASE
     Route: 048
     Dates: start: 20060101, end: 20080101

REACTIONS (6)
  - DYSGEUSIA [None]
  - FLATULENCE [None]
  - ERUCTATION [None]
  - DRUG INEFFECTIVE [None]
  - DYSPEPSIA [None]
  - OFF LABEL USE [None]
